FAERS Safety Report 14683189 (Version 1)
Quarter: 2018Q1

REPORT INFORMATION
  Report Type: Report from Study
  Country: US (occurrence: US)
  Receive Date: 20180327
  Receipt Date: 20180327
  Transmission Date: 20180509
  Serious: Yes (Hospitalization)
  Sender: FDA-Public Use
  Company Number: US-BRISTOL-MYERS SQUIBB COMPANY-BMS-2018-026258

PATIENT
  Age: 75 Year
  Sex: Female
  Weight: 81.9 kg

DRUGS (1)
  1. NIVOLUMAB [Suspect]
     Active Substance: NIVOLUMAB
     Indication: ACUTE MYELOID LEUKAEMIA
     Dosage: 3 MG/KG, UNK
     Route: 042
     Dates: start: 20170808, end: 20170808

REACTIONS (1)
  - Sinus tachycardia [Recovered/Resolved]

NARRATIVE: CASE EVENT DATE: 20170813
